FAERS Safety Report 6417592-3 (Version None)
Quarter: 2009Q4

REPORT INFORMATION
  Report Type: 
  Country: None (occurrence: None)
  Receive Date: 20091028
  Receipt Date: 20091019
  Transmission Date: 20100525
  Serious: Yes (Other)
  Sender: FDA-Public Use
  Company Number: US-ROCHE-663842

PATIENT
  Age: 12 Year
  Sex: Male
  Weight: 36.4 kg

DRUGS (6)
  1. TAMIFLU [Suspect]
     Route: 048
     Dates: start: 20091017
  2. XOPENEX [Concomitant]
  3. PULMICORT [Concomitant]
  4. NASONEX [Concomitant]
  5. ASTEPRO [Concomitant]
  6. SINGULAIR [Concomitant]

REACTIONS (1)
  - PYREXIA [None]
